FAERS Safety Report 4499798-6 (Version None)
Quarter: 2004Q4

REPORT INFORMATION
  Report Type: 
  Country: None (occurrence: None)
  Receive Date: 20041110
  Receipt Date: 20041110
  Transmission Date: 20050328
  Serious: Yes (Hospitalization)
  Sender: FDA-Public Use
  Company Number: None

PATIENT
  Age: 47 Year
  Sex: Male
  Weight: 90.7 kg

DRUGS (10)
  1. WARFARIN SODIUM [Suspect]
     Indication: MITRAL VALVE REPLACEMENT
     Dosage: VARIOUS, VARIOUS, ORAL
     Route: 048
  2. LANOXIN [Suspect]
     Indication: CARDIAC FAILURE CONGESTIVE
     Dosage: 0.25MG, 0.25MG D, ORAL
     Route: 048
  3. DM 10/GUAIFENESIN [Concomitant]
  4. FUROSEMIDE [Concomitant]
  5. GABAPENTIN [Concomitant]
  6. LISINOPRIL [Concomitant]
  7. OMEPRAZOLE [Concomitant]
  8. PSYLLIUM [Concomitant]
  9. SPIRONOLACTONE [Concomitant]
  10. QUETIAPINE FUMARATE [Concomitant]

REACTIONS (1)
  - INTERNATIONAL NORMALISED RATIO INCREASED [None]
